FAERS Safety Report 18632725 (Version 1)
Quarter: 2020Q4

REPORT INFORMATION
  Report Type: Spontaneous
  Country: US (occurrence: US)
  Receive Date: 20201217
  Receipt Date: 20201217
  Transmission Date: 20210114
  Serious: Yes (Hospitalization)
  Sender: FDA-Public Use
  Company Number: None

PATIENT
  Sex: Male
  Weight: 99.79 kg

DRUGS (2)
  1. DAUNORUBICIN [Suspect]
     Active Substance: DAUNORUBICIN
     Dates: end: 20200216
  2. CYTARABINE (63878) [Suspect]
     Active Substance: CYTARABINE
     Dates: end: 20200222

REACTIONS (8)
  - Mechanical ventilation complication [None]
  - Fluid overload [None]
  - Colitis [None]
  - Large intestinal ulcer [None]
  - Intestinal ischaemia [None]
  - Abdominal distension [None]
  - Thrombosis [None]
  - Complication associated with device [None]

NARRATIVE: CASE EVENT DATE: 20200303
